FAERS Safety Report 22209981 (Version 1)
Quarter: 2023Q2

REPORT INFORMATION
  Report Type: Spontaneous
  Country: ES (occurrence: ES)
  Receive Date: 20230414
  Receipt Date: 20230414
  Transmission Date: 20230722
  Serious: Yes (Other)
  Sender: FDA-Public Use
  Company Number: None

PATIENT

DRUGS (5)
  1. ZOLADEX [Suspect]
     Active Substance: GOSERELIN ACETATE
     Indication: Breast cancer
     Dosage: 1 IMPLANTE MENSUAL
     Route: 058
     Dates: start: 20220511
  2. ZOLADEX [Suspect]
     Active Substance: GOSERELIN ACETATE
     Indication: Breast cancer
     Dosage: UNK
     Route: 065
  3. OMEPRAZOL SANDOZ [OMEPRAZOLE] [Concomitant]
     Indication: Product used for unknown indication
     Dosage: 65 CAPSULES
     Route: 048
     Dates: start: 20211118
  4. TAMOXIFEN CITRATE [Concomitant]
     Active Substance: TAMOXIFEN CITRATE
     Indication: Breast cancer
     Dosage: 60 TABLETS
     Route: 048
     Dates: start: 20230207
  5. MASTICAL D [Concomitant]
     Indication: Product used for unknown indication
     Dosage: STRAWBERRY FLAVOR CHEWABLES, 30 TABLETS
     Route: 048
     Dates: start: 20220510

REACTIONS (6)
  - Chest discomfort [Recovered/Resolved]
  - Nausea [Recovered/Resolved]
  - Malaise [Recovered/Resolved]
  - Hot flush [Recovered/Resolved]
  - Tachycardia [Recovered/Resolved]
  - Fatigue [Recovered/Resolved]

NARRATIVE: CASE EVENT DATE: 20230314
